FAERS Safety Report 22333446 (Version 1)
Quarter: 2023Q2

REPORT INFORMATION
  Report Type: Report from Study
  Country: None (occurrence: A1)
  Receive Date: 20230517
  Receipt Date: 20230517
  Transmission Date: 20230721
  Serious: Yes (Other)
  Sender: FDA-Public Use
  Company Number: A1-Nephron Pharmaceuticals Corporation-2141601

PATIENT
  Age: 42 Year
  Sex: Male

DRUGS (1)
  1. KETOROLAC TROMETHAMINE [Suspect]
     Active Substance: KETOROLAC TROMETHAMINE

REACTIONS (1)
  - Mesangioproliferative glomerulonephritis [Recovered/Resolved]
